FAERS Safety Report 7088479-0 (Version None)
Quarter: 2010Q4

REPORT INFORMATION
  Report Type: 
  Country: None (occurrence: None)
  Receive Date: 20101108
  Receipt Date: 20101101
  Transmission Date: 20110411
  Serious: Yes (Other)
  Sender: FDA-Public Use
  Company Number: IN-BAXTER-2010BH027044

PATIENT
  Age: 7 Year
  Sex: Female

DRUGS (4)
  1. IFOSFAMIDE [Suspect]
     Indication: NEPHROBLASTOMA
     Route: 042
  2. MESNA [Suspect]
     Indication: NEPHROBLASTOMA
     Route: 042
  3. ETOPOSIDE [Suspect]
     Indication: NEPHROBLASTOMA
     Route: 042
  4. CARBOPLATIN [Suspect]
     Indication: NEPHROBLASTOMA
     Route: 042

REACTIONS (1)
  - PANCREATITIS ACUTE [None]
